FAERS Safety Report 24672901 (Version 3)
Quarter: 2025Q1

REPORT INFORMATION
  Report Type: Report from Study
  Country: US (occurrence: US)
  Receive Date: 20241128
  Receipt Date: 20250122
  Transmission Date: 20250408
  Serious: Yes (Hospitalization)
  Sender: ABBVIE
  Company Number: US-ABBVIE-6017333

PATIENT
  Age: 23 Year
  Sex: Female
  Weight: 113.85 kg

DRUGS (3)
  1. RINVOQ [Suspect]
     Active Substance: UPADACITINIB
     Indication: Crohn^s disease
     Dosage: FORM STRENGTH:45MG
     Route: 048
     Dates: start: 20241107
  2. PANTOPRAZOLE [Concomitant]
     Active Substance: PANTOPRAZOLE
     Indication: Crohn^s disease
  3. THIAMINE [Concomitant]
     Active Substance: THIAMINE
     Indication: Abdominal pain upper

REACTIONS (11)
  - Pain [Unknown]
  - Haematochezia [Unknown]
  - Crohn^s disease [Not Recovered/Not Resolved]
  - Generalised oedema [Recovering/Resolving]
  - Back pain [Not Recovered/Not Resolved]
  - Vomiting [Recovered/Resolved]
  - Abdominal distension [Not Recovered/Not Resolved]
  - Intestinal mucosal hypertrophy [Unknown]
  - Movement disorder [Unknown]
  - Nausea [Unknown]
  - Unevaluable event [Unknown]

NARRATIVE: CASE EVENT DATE: 20240101
